FAERS Safety Report 7214525-7 (Version None)
Quarter: 2010Q4

REPORT INFORMATION
  Report Type: 
  Country: None (occurrence: None)
  Receive Date: 20101126
  Receipt Date: 20091015
  Transmission Date: 20110411
  Serious: Yes (Disabling, Other)
  Sender: FDA-Public Use
  Company Number: WAES 0903USA04198

PATIENT
  Age: 56 Year
  Sex: Female
  Weight: 55.3388 kg

DRUGS (9)
  1. FOSAMAX [Suspect]
     Indication: OSTEOPENIA
     Dosage: 70 MG/PO
     Route: 048
     Dates: start: 19970101, end: 20060125
  2. FOSAMAX [Suspect]
     Indication: OSTEOPOROSIS
     Dosage: 70 MG/PO
     Route: 048
     Dates: start: 19970101, end: 20060125
  3. FOSAMAX [Suspect]
     Indication: OSTEOPENIA
     Dosage: 70 MG;WKY/PO ; 10 MG/DAILY/PO ; DAILY/PO
     Route: 048
     Dates: end: 20001205
  4. FOSAMAX [Suspect]
     Indication: OSTEOPOROSIS
     Dosage: 70 MG;WKY/PO ; 10 MG/DAILY/PO ; DAILY/PO
     Route: 048
     Dates: end: 20001205
  5. FOSAMAX [Suspect]
     Indication: OSTEOPENIA
     Dosage: 70 MG;WKY/PO ; 10 MG/DAILY/PO ; DAILY/PO
     Route: 048
     Dates: end: 20051001
  6. FOSAMAX [Suspect]
     Indication: OSTEOPOROSIS
     Dosage: 70 MG;WKY/PO ; 10 MG/DAILY/PO ; DAILY/PO
     Route: 048
     Dates: end: 20051001
  7. FOSAMAX [Suspect]
     Indication: OSTEOPENIA
     Dosage: 70 MG;WKY/PO ; 10 MG/DAILY/PO ; DAILY/PO
     Route: 048
     Dates: start: 20001205
  8. FOSAMAX [Suspect]
     Indication: OSTEOPOROSIS
     Dosage: 70 MG;WKY/PO ; 10 MG/DAILY/PO ; DAILY/PO
     Route: 048
     Dates: start: 20001205
  9. AMITRIPTYLINE HYDROCHLORIDE [Concomitant]

REACTIONS (27)
  - ABDOMINAL DISCOMFORT [None]
  - ABDOMINAL PAIN UPPER [None]
  - ADVERSE DRUG REACTION [None]
  - BACK PAIN [None]
  - BONE DENSITY DECREASED [None]
  - CONTUSION [None]
  - DEPRESSION [None]
  - DIVERTICULUM [None]
  - DRUG INEFFECTIVE [None]
  - EUSTACHIAN TUBE DYSFUNCTION [None]
  - FALL [None]
  - FATIGUE [None]
  - GINGIVAL DISORDER [None]
  - HAEMATURIA [None]
  - HOT FLUSH [None]
  - HYPERTENSION [None]
  - JAW DISORDER [None]
  - LOBAR PNEUMONIA [None]
  - ORAL INFECTION [None]
  - OSTEONECROSIS [None]
  - OSTEOPENIA [None]
  - OSTEOPOROSIS [None]
  - PNEUMONIA [None]
  - ROAD TRAFFIC ACCIDENT [None]
  - SKIN LESION [None]
  - ULCER [None]
  - WRIST FRACTURE [None]
